FAERS Safety Report 9958490 (Version 2)
Quarter: 2016Q1

REPORT INFORMATION
  Report Type: Report from Study
  Country: US (occurrence: US)
  Receive Date: 20140305
  Receipt Date: 20160304
  Transmission Date: 20160526
  Serious: Yes (Other)
  Sender: FDA-Public Use
  Company Number: US-ROCHE-1341204

PATIENT
  Age: 53 Year
  Sex: Female

DRUGS (22)
  1. IBUPROFEN. [Concomitant]
     Active Substance: IBUPROFEN
     Dosage: 1 TABLET Q 6HRS AS NEEDED
     Route: 048
  2. CLINDAMYCIN [Concomitant]
     Active Substance: CLINDAMYCIN\CLINDAMYCIN PHOSPHATE
     Route: 048
     Dates: end: 20110802
  3. ASPIRIN. [Concomitant]
     Active Substance: ASPIRIN
     Route: 048
  4. NOVOLOG [Concomitant]
     Active Substance: INSULIN ASPART
     Indication: TYPE 1 DIABETES MELLITUS
     Dosage: 25 UNITS AT BK,15 UNITS LUNCH, AND 20 UNITS DINNER
     Route: 058
  5. TRIAMCINOLONE ACETONIDE. [Concomitant]
     Active Substance: TRIAMCINOLONE ACETONIDE
     Route: 065
  6. METFORMIN [Concomitant]
     Active Substance: METFORMIN HYDROCHLORIDE
     Route: 048
  7. LUCENTIS [Suspect]
     Active Substance: RANIBIZUMAB
     Indication: DIABETIC RETINOPATHY
  8. FISH OIL [Concomitant]
     Active Substance: FISH OIL
     Dosage: 2 TABS
     Route: 048
  9. LIDOCAINE. [Concomitant]
     Active Substance: LIDOCAINE
     Route: 057
  10. NOVOLOG [Concomitant]
     Active Substance: INSULIN ASPART
     Dosage: 85 UNITS A DAY
     Route: 058
  11. LIRAGLUTIDE [Concomitant]
     Active Substance: LIRAGLUTIDE
     Indication: TYPE 2 DIABETES MELLITUS
     Route: 058
  12. LUCENTIS [Suspect]
     Active Substance: RANIBIZUMAB
     Indication: RETINAL OEDEMA
     Dosage: 15/JUL/2011
     Route: 050
  13. LUCENTIS [Suspect]
     Active Substance: RANIBIZUMAB
     Indication: DIABETIC RETINAL OEDEMA
  14. AVASTIN [Suspect]
     Active Substance: BEVACIZUMAB
     Indication: PRODUCT USED FOR UNKNOWN INDICATION
     Dosage: NUMBER 7 OD
     Route: 065
     Dates: start: 20101221
  15. TRIAMCINOLONE ACETONIDE. [Concomitant]
     Active Substance: TRIAMCINOLONE ACETONIDE
     Dosage: APPLY THIN FILM TO AFFECTED AREAS
     Route: 065
     Dates: end: 20120827
  16. PHENYLEPHRINE [Concomitant]
     Active Substance: PHENYLEPHRINE\PHENYLEPHRINE HYDROCHLORIDE
     Route: 065
  17. MYDRIACYL [Concomitant]
     Active Substance: TROPICAMIDE
     Route: 065
  18. AVASTIN [Suspect]
     Active Substance: BEVACIZUMAB
     Dosage: #6 OS
     Route: 065
     Dates: start: 20110524, end: 20110524
  19. ERGOCALCIFEROL. [Concomitant]
     Active Substance: ERGOCALCIFEROL
     Route: 048
  20. LISINOPRIL. [Concomitant]
     Active Substance: LISINOPRIL
     Dosage: 1 TAB
     Route: 048
  21. LUCENTIS [Suspect]
     Active Substance: RANIBIZUMAB
     Indication: MACULAR OEDEMA
  22. LANTUS [Concomitant]
     Active Substance: INSULIN GLARGINE
     Dosage: 70 UNITS AT BEDTIME
     Route: 058

REACTIONS (14)
  - Macular fibrosis [Unknown]
  - Off label use [Unknown]
  - Cataract nuclear [Unknown]
  - Skin candida [Unknown]
  - Acquired mixed hyperlipidaemia [Unknown]
  - Vision blurred [Unknown]
  - Hypermetropia [Unknown]
  - Vitreous haemorrhage [Unknown]
  - Intraocular pressure increased [Unknown]
  - Visual acuity reduced [Unknown]
  - Cystoid macular oedema [Unknown]
  - Blood glucose increased [Unknown]
  - Upper limb fracture [Unknown]
  - Retinal aneurysm [Unknown]

NARRATIVE: CASE EVENT DATE: 2011
